FAERS Safety Report 25916142 (Version 1)
Quarter: 2025Q4

REPORT INFORMATION
  Report Type: Spontaneous
  Country: US (occurrence: US)
  Receive Date: 20251014
  Receipt Date: 20251014
  Transmission Date: 20260118
  Serious: No
  Sender: ACCORD
  Company Number: US-Accord-457085

PATIENT
  Sex: Male

DRUGS (1)
  1. MYCOPHENOLIC ACID [Suspect]
     Active Substance: MYCOPHENOLIC ACID
     Indication: Product used for unknown indication
     Dosage: DELAYED-RELEASE, 360 MG THRICE A DAY

REACTIONS (1)
  - Off label use [Unknown]
